FAERS Safety Report 5414452-1 (Version None)
Quarter: 2007Q3

REPORT INFORMATION
  Report Type: 
  Country: None (occurrence: None)
  Receive Date: 20070814
  Receipt Date: 20070809
  Transmission Date: 20080115
  Serious: Yes (Hospitalization)
  Sender: FDA-Public Use
  Company Number: DE-ABBOTT-07P-062-0366070-00

PATIENT
  Sex: Female
  Weight: 88 kg

DRUGS (5)
  1. HUMIRA [Suspect]
     Indication: PSORIASIS
     Route: 058
     Dates: start: 20061101
  2. HUMIRA [Suspect]
     Indication: PSORIATIC ARTHROPATHY
  3. INDOMETHACIN [Concomitant]
     Indication: PSORIASIS
     Route: 048
     Dates: start: 20061101
  4. XIMOVAN [Concomitant]
     Indication: SLEEP DISORDER
     Route: 048
     Dates: start: 20070414
  5. AMLODIPINE BESYLATE [Concomitant]
     Indication: HYPERTENSION
     Route: 048

REACTIONS (1)
  - HALLUCINATION, AUDITORY [None]
